FAERS Safety Report 4804731-0 (Version None)
Quarter: 2005Q4

REPORT INFORMATION
  Report Type: 
  Country: None (occurrence: None)
  Receive Date: 20051020
  Receipt Date: 20051011
  Transmission Date: 20060501
  Serious: Yes (Other)
  Sender: FDA-Public Use
  Company Number: DE-JNJFOC-20051002840

PATIENT
  Age: 18 Year
  Sex: Female

DRUGS (2)
  1. RISPERDAL [Suspect]
     Indication: DRUG USE FOR UNKNOWN INDICATION
     Dosage: INHALED 1 TABLET
     Route: 055
  2. ALCOHOL [Suspect]
     Indication: DRUG USE FOR UNKNOWN INDICATION
     Route: 065

REACTIONS (2)
  - DRUG ABUSER [None]
  - VOMITING [None]
